FAERS Safety Report 23672771 (Version 1)
Quarter: 2024Q1

REPORT INFORMATION
  Report Type: Spontaneous
  Country: FR (occurrence: FR)
  Receive Date: 20240326
  Receipt Date: 20240326
  Transmission Date: 20240410
  Serious: Yes (Hospitalization)
  Sender: FDA-Public Use
  Company Number: None

PATIENT
  Age: 49 Year
  Sex: Male
  Weight: 80.8 kg

DRUGS (6)
  1. TEGRETOL [Suspect]
     Active Substance: CARBAMAZEPINE
     Indication: Trigeminal neuralgia
     Dosage: 100 MG, Q12H
     Route: 048
     Dates: start: 20240222, end: 20240223
  2. TEGRETOL [Suspect]
     Active Substance: CARBAMAZEPINE
     Dosage: 400 MG, QD (200 MG LP LE MATIN200 MG LP LE SOIR)
     Route: 048
     Dates: start: 20240301, end: 20240305
  3. TEGRETOL [Suspect]
     Active Substance: CARBAMAZEPINE
     Dosage: 100 MG, QD (LE SOIR)
     Route: 048
     Dates: start: 20240220, end: 20240221
  4. TEGRETOL [Suspect]
     Active Substance: CARBAMAZEPINE
     Dosage: 600 MG, QD (200 MG LP LE MATIN400 MG LP LE SOIR)
     Route: 048
     Dates: start: 20240306, end: 20240308
  5. TEGRETOL [Suspect]
     Active Substance: CARBAMAZEPINE
     Dosage: 300 MG, QD (100 MG LE MATIN200 MG LE SOIR)
     Route: 048
     Dates: start: 20240224, end: 20240225
  6. TEGRETOL [Suspect]
     Active Substance: CARBAMAZEPINE
     Dosage: 400 MG, QD (200 MG LE MATIN200 MG LE SOIR)
     Route: 048
     Dates: start: 20240226, end: 20240229

REACTIONS (2)
  - Hyperthermia [Recovered/Resolved]
  - Drug eruption [Recovering/Resolving]

NARRATIVE: CASE EVENT DATE: 20240308
